FAERS Safety Report 15402014 (Version 1)
Quarter: 2018Q3

REPORT INFORMATION
  Report Type: Report from Study
  Country: None (occurrence: US)
  Receive Date: 20180919
  Receipt Date: 20180919
  Transmission Date: 20181010
  Serious: Yes (Hospitalization)
  Sender: FDA-Public Use
  Company Number: US-ABBVIE-18K-163-2484671-00

PATIENT
  Age: 38 Year
  Sex: Female
  Weight: 63.56 kg

DRUGS (2)
  1. MAVYRET [Suspect]
     Active Substance: GLECAPREVIR\PIBRENTASVIR
     Indication: CHRONIC HEPATITIS C
     Dosage: 100/40
     Route: 048
     Dates: start: 2018
  2. PROTONIX [Concomitant]
     Active Substance: PANTOPRAZOLE SODIUM
     Indication: PRODUCT USED FOR UNKNOWN INDICATION

REACTIONS (5)
  - Abscess limb [Unknown]
  - Vulval abscess [Unknown]
  - Vulval cellulitis [Unknown]
  - Subcutaneous abscess [Unknown]
  - Cellulitis [Unknown]

NARRATIVE: CASE EVENT DATE: 20180910
